FAERS Safety Report 17298929 (Version 1)
Quarter: 2020Q1

REPORT INFORMATION
  Report Type: Spontaneous
  Country: US (occurrence: US)
  Receive Date: 20200121
  Receipt Date: 20200121
  Transmission Date: 20200409
  Serious: Yes (Life-Threatening, Disabling)
  Sender: FDA-Public Use
  Company Number: None

PATIENT
  Age: 65 Year
  Sex: Male
  Weight: 90 kg

DRUGS (5)
  1. LOSARTAN-HCTZ [Concomitant]
     Active Substance: HYDROCHLOROTHIAZIDE\LOSARTAN
  2. METOPROLOL SUCC. [Concomitant]
  3. HUMIRA 40 MG/0.8M [Concomitant]
  4. AMLODIPINE BESYLATE 5MG [Concomitant]
     Active Substance: AMLODIPINE BESYLATE
  5. HUMIRA [Suspect]
     Active Substance: ADALIMUMAB
     Indication: COLITIS ULCERATIVE
     Dosage: ?          OTHER FREQUENCY:EVERY TWO WEEKS;?
     Route: 030
     Dates: start: 20171204, end: 20181217

REACTIONS (1)
  - B-cell lymphoma [None]

NARRATIVE: CASE EVENT DATE: 20190115
